FAERS Safety Report 15137816 (Version 1)
Quarter: 2018Q3

REPORT INFORMATION
  Report Type: Spontaneous
  Country: US (occurrence: US)
  Receive Date: 20180712
  Receipt Date: 20180712
  Transmission Date: 20181010
  Serious: No
  Sender: FDA-Public Use
  Company Number: US-NOVOPROD-601514

PATIENT
  Age: 65 Year
  Sex: Female

DRUGS (6)
  1. APIDRA [Concomitant]
     Active Substance: INSULIN GLULISINE
     Indication: TYPE 1 DIABETES MELLITUS
     Route: 058
  2. TRESIBA [Suspect]
     Active Substance: INSULIN DEGLUDEC
     Dosage: 24 U, QD ? AT NIGHT
     Route: 058
  3. TRESIBA [Suspect]
     Active Substance: INSULIN DEGLUDEC
     Dosage: 24 U, QD ? AT NIGHT
     Route: 058
  4. TRESIBA [Suspect]
     Active Substance: INSULIN DEGLUDEC
     Dosage: 24 U, QD ? AT NIGHT
     Route: 058
  5. TRESIBA [Suspect]
     Active Substance: INSULIN DEGLUDEC
     Indication: TYPE 1 DIABETES MELLITUS
     Dosage: 24 U, QD ? AT NIGHT
     Route: 058
     Dates: start: 2015
  6. TRESIBA [Suspect]
     Active Substance: INSULIN DEGLUDEC
     Dosage: 24 U, QD ? AT NIGHT
     Route: 058

REACTIONS (2)
  - Product quality issue [Not Recovered/Not Resolved]
  - Blood glucose increased [Not Recovered/Not Resolved]

NARRATIVE: CASE EVENT DATE: 201712
